FAERS Safety Report 4753255-8 (Version None)
Quarter: 2005Q3

REPORT INFORMATION
  Report Type: 
  Country: None (occurrence: None)
  Receive Date: 20050824
  Receipt Date: 20050812
  Transmission Date: 20060218
  Serious: Yes (Hospitalization)
  Sender: FDA-Public Use
  Company Number: KII-2005-0018051

PATIENT
  Age: 41 Year
  Sex: Male

DRUGS (2)
  1. MORPHINE [Suspect]
     Indication: PAIN
     Dosage: ORAL
     Route: 048
  2. TRAMADOL HCL [Suspect]
     Indication: PAIN

REACTIONS (5)
  - ABNORMAL BEHAVIOUR [None]
  - AGITATION [None]
  - INTENTIONAL MISUSE [None]
  - LETHARGY [None]
  - SOMNOLENCE [None]
